FAERS Safety Report 16455181 (Version 1)
Quarter: 2019Q2

REPORT INFORMATION
  Report Type: Spontaneous
  Country: US (occurrence: US)
  Receive Date: 20190620
  Receipt Date: 20190620
  Transmission Date: 20190711
  Serious: No
  Sender: FDA-Public Use
  Company Number: US-GLENMARK PHARMACEUTICALS-2019GMK040394

PATIENT

DRUGS (2)
  1. ESTRADIOL VAGINAL INSERTS USP [Suspect]
     Active Substance: ESTRADIOL
     Dosage: UNK (2ND PACK)
     Route: 065
     Dates: start: 20190315, end: 20190315
  2. ESTRADIOL VAGINAL INSERTS USP [Suspect]
     Active Substance: ESTRADIOL
     Indication: HORMONE THERAPY
     Dosage: UNK (1ST PACK)
     Route: 065
     Dates: end: 20190311

REACTIONS (3)
  - Device material issue [Unknown]
  - Vulvovaginal discomfort [Recovered/Resolved]
  - Exposure to contaminated device [Unknown]

NARRATIVE: CASE EVENT DATE: 20190311
